FAERS Safety Report 10063796 (Version 2)
Quarter: 2014Q2

REPORT INFORMATION
  Report Type: Spontaneous
  Country: US (occurrence: US)
  Receive Date: 20140408
  Receipt Date: 20140624
  Transmission Date: 20141212
  Serious: Yes (Other)
  Sender: FDA-Public Use
  Company Number: US-AMGEN INC.-USASP2014023966

PATIENT
  Age: 84 Year
  Sex: Male
  Weight: 77.1 kg

DRUGS (2)
  1. PROCRIT [Suspect]
     Indication: MYELODYSPLASTIC SYNDROME
     Dosage: 20000 UNIT, Q3WK
     Route: 065
  2. PROCRIT [Suspect]
     Dosage: 40000 UNIT, Q3WK
     Route: 065

REACTIONS (2)
  - Blood count abnormal [Recovered/Resolved]
  - Therapeutic response decreased [Unknown]
